FAERS Safety Report 8406108-8 (Version None)
Quarter: 2012Q2

REPORT INFORMATION
  Report Type: 
  Country: None (occurrence: None)
  Receive Date: 20120604
  Receipt Date: 20120531
  Transmission Date: 20120825
  Serious: Yes (Hospitalization)
  Sender: FDA-Public Use
  Company Number: US-AMGEN-USASP2011064532

PATIENT
  Age: 63 Year
  Sex: Female

DRUGS (1)
  1. ENBREL [Suspect]
     Indication: RHEUMATOID ARTHRITIS
     Dosage: 50 MG, QWK
     Dates: start: 19981201, end: 20111122

REACTIONS (5)
  - SINUSITIS [None]
  - FOOT OPERATION [None]
  - RHEUMATOID ARTHRITIS [None]
  - JOINT SWELLING [None]
  - HERPES ZOSTER [None]
